FAERS Safety Report 7417291-5 (Version None)
Quarter: 2011Q2

REPORT INFORMATION
  Report Type: 
  Country: None (occurrence: None)
  Receive Date: 20110415
  Receipt Date: 20110411
  Transmission Date: 20111010
  Serious: Yes (Other)
  Sender: FDA-Public Use
  Company Number: DE-SANOFI-AVENTIS-2011SA021749

PATIENT
  Age: 69 Year

DRUGS (6)
  1. ARAVA [Suspect]
     Indication: RHEUMATOID ARTHRITIS
     Route: 048
     Dates: end: 20100801
  2. SIMVASTATIN [Concomitant]
     Indication: HYPERLIPIDAEMIA
     Route: 065
  3. AMLODIPINE [Concomitant]
     Route: 065
     Dates: start: 20100101
  4. RAMIPRIL [Concomitant]
     Route: 065
     Dates: start: 20100101
  5. METOPROLOL TARTRATE [Concomitant]
     Route: 065
     Dates: start: 20100101
  6. ETANERCEPT [Concomitant]
     Indication: RHEUMATOID ARTHRITIS
     Dosage: 50 MG WEEKLY
     Route: 058
     Dates: start: 20080101, end: 20101201

REACTIONS (3)
  - EMPHYSEMA [None]
  - PULMONARY FIBROSIS [None]
  - DIARRHOEA [None]
